FAERS Safety Report 15462637 (Version 1)
Quarter: 2018Q4

REPORT INFORMATION
  Report Type: Report from Study
  Country: CA (occurrence: CA)
  Receive Date: 20181004
  Receipt Date: 20181004
  Transmission Date: 20190204
  Serious: Yes (Death, Other)
  Sender: FDA-Public Use
  Company Number: CA-TOLMAR, INC.-2018CA008988

PATIENT

DRUGS (1)
  1. ELIGARD [Suspect]
     Active Substance: LEUPROLIDE ACETATE
     Indication: PRODUCT USED FOR UNKNOWN INDICATION
     Dosage: 22.5 MG, UNK
     Route: 058
     Dates: start: 20180319, end: 20180904

REACTIONS (6)
  - Yellow skin [Recovering/Resolving]
  - Dyspnoea [Recovering/Resolving]
  - Malignant neoplasm progression [Recovering/Resolving]
  - Oedema peripheral [Recovering/Resolving]
  - Death [Fatal]
  - Somnolence [Recovering/Resolving]

NARRATIVE: CASE EVENT DATE: 2018
